FAERS Safety Report 10205942 (Version 1)
Quarter: 2014Q2

REPORT INFORMATION
  Report Type: Spontaneous
  Country: JP (occurrence: JP)
  Receive Date: 20140530
  Receipt Date: 20140530
  Transmission Date: 20141212
  Serious: Yes (Other)
  Sender: FDA-Public Use
  Company Number: JP-BRISTOL-MYERS SQUIBB COMPANY-20847083

PATIENT
  Age: 57 Year
  Sex: Male

DRUGS (5)
  1. METGLUCO [Suspect]
     Indication: TYPE 2 DIABETES MELLITUS
     Route: 048
     Dates: start: 20130106, end: 20130108
  2. VILDAGLIPTIN [Concomitant]
     Route: 048
  3. CELECOXIB [Concomitant]
     Route: 048
  4. NOVORAPID [Concomitant]
     Route: 058
  5. LANTUS [Concomitant]
     Route: 058

REACTIONS (1)
  - Drug eruption [Recovering/Resolving]
